FAERS Safety Report 9432754 (Version 2)
Quarter: 2013Q3

REPORT INFORMATION
  Report Type: Spontaneous
  Country: IT (occurrence: IT)
  Receive Date: 20130731
  Receipt Date: 20130926
  Transmission Date: 20140515
  Serious: Yes (Other)
  Sender: FDA-Public Use
  Company Number: IT-BAYER-2013-089830

PATIENT
  Age: 71 Year
  Sex: 0
  Weight: 65 kg

DRUGS (1)
  1. PRIMOVIST [Suspect]
     Indication: INVESTIGATION
     Dosage: 10 ML, ONCE
     Route: 042
     Dates: start: 20130507, end: 20130507

REACTIONS (3)
  - Presyncope [Recovered/Resolved]
  - Rash [Recovered/Resolved]
  - Malaise [Recovered/Resolved]
